FAERS Safety Report 7669695-3 (Version None)
Quarter: 2011Q3

REPORT INFORMATION
  Report Type: 
  Country: None (occurrence: None)
  Receive Date: 20110808
  Receipt Date: 20110805
  Transmission Date: 20111222
  Serious: Yes (Other)
  Sender: FDA-Public Use
  Company Number: GB-TEVA-266538ISR

PATIENT
  Age: 38 Year
  Sex: Female
  Weight: 65 kg

DRUGS (1)
  1. MIRTAZAPINE [Suspect]
     Indication: DEPRESSION
     Route: 048
     Dates: start: 20080101, end: 20101201

REACTIONS (2)
  - MALAISE [None]
  - HAEMOLYTIC ANAEMIA [None]
